FAERS Safety Report 5126694-3 (Version None)
Quarter: 2006Q4

REPORT INFORMATION
  Report Type: 
  Country: None (occurrence: None)
  Receive Date: 20061012
  Receipt Date: 20061012
  Transmission Date: 20070319
  Serious: Yes (Hospitalization)
  Sender: FDA-Public Use
  Company Number: None

PATIENT
  Age: 75 Year
  Sex: Male
  Weight: 87.6 kg

DRUGS (1)
  1. GENTAMICIN [Suspect]
     Indication: PNEUMONIA
     Dosage: 480MG, 160 MG Q 8 H, INTRAVEN
     Route: 042
     Dates: start: 20060728, end: 20060801

REACTIONS (1)
  - BLOOD CREATININE INCREASED [None]
